FAERS Safety Report 6306147-7 (Version None)
Quarter: 2009Q3

REPORT INFORMATION
  Report Type: 
  Country: None (occurrence: None)
  Receive Date: 20090812
  Receipt Date: 20090731
  Transmission Date: 20100115
  Serious: Yes (Hospitalization)
  Sender: FDA-Public Use
  Company Number: US-RB-019142-09

PATIENT
  Age: 16 Year
  Sex: Male

DRUGS (3)
  1. PROZAC [Concomitant]
  2. MUCINEX MINI-MELTS COUGH ORANGE CREME [Suspect]
     Route: 048
     Dates: start: 20090701
  3. ALCOHOL [Suspect]

REACTIONS (7)
  - ALCOHOL USE [None]
  - DEHYDRATION [None]
  - DIARRHOEA [None]
  - DRUG SCREEN POSITIVE [None]
  - OVERDOSE [None]
  - TREMOR [None]
  - VOMITING [None]
